FAERS Safety Report 19771202 (Version 1)
Quarter: 2021Q3

REPORT INFORMATION
  Report Type: Other
  Country: CA (occurrence: CA)
  Receive Date: 20210901
  Receipt Date: 20210901
  Transmission Date: 20211014
  Serious: Yes (Hospitalization, Other)
  Sender: FDA-Public Use
  Company Number: CA-APOTEX-2021AP039874

PATIENT
  Age: 58 Year
  Sex: Male

DRUGS (2)
  1. ACETAMINOPHEN TABLETS USP 500 MG [Suspect]
     Active Substance: ACETAMINOPHEN
     Indication: TOOTHACHE
     Dosage: 9 GRAM, QD
     Route: 048
  2. ACETAMINOPHEN TABLETS USP 500 MG [Suspect]
     Active Substance: ACETAMINOPHEN
     Indication: ANALGESIC THERAPY

REACTIONS (9)
  - Acute hepatic failure [Recovered/Resolved]
  - Abdominal tenderness [Recovered/Resolved]
  - Acute kidney injury [Recovered/Resolved]
  - Cholaemia [Recovered/Resolved]
  - Nephrotic syndrome [Recovered/Resolved]
  - Asterixis [Recovered/Resolved]
  - Accidental overdose [Recovered/Resolved]
  - Abdominal pain [Recovered/Resolved]
  - Ocular icterus [Recovered/Resolved]
